FAERS Safety Report 4597072-0 (Version None)
Quarter: 2005Q1

REPORT INFORMATION
  Report Type: 
  Country: None (occurrence: None)
  Receive Date: 20050301
  Receipt Date: 20050216
  Transmission Date: 20050727
  Serious: Yes (Disabling)
  Sender: FDA-Public Use
  Company Number: 2005035917

PATIENT
  Age: 80 Year
  Sex: Male

DRUGS (5)
  1. TOLTERODINE TARTRATE [Suspect]
     Indication: URINARY INCONTINENCE
     Dosage: 1-2 MILLIGRAM, ORAL
     Route: 048
     Dates: start: 20041119, end: 20041119
  2. CAPTOPRIL [Concomitant]
  3. ISOSORBIDE MONONITRATE [Concomitant]
  4. SIMVASTATIN [Concomitant]
  5. ASPIRIN [Concomitant]

REACTIONS (2)
  - BLINDNESS TRANSIENT [None]
  - RETINAL ARTERY OCCLUSION [None]
